FAERS Safety Report 20327583 (Version 1)
Quarter: 2022Q1

REPORT INFORMATION
  Report Type: Spontaneous
  Country: CA (occurrence: CA)
  Receive Date: 20220112
  Receipt Date: 20220112
  Transmission Date: 20220424
  Serious: Yes (Other)
  Sender: FDA-Public Use
  Company Number: CA-SAMSUNG BIOEPIS-SB-2022-00244

PATIENT
  Age: 37 Year
  Sex: Male
  Weight: 89 kg

DRUGS (2)
  1. INFLIXIMAB [Suspect]
     Active Substance: INFLIXIMAB
     Indication: Colitis ulcerative
     Route: 042
  2. PFIZER-BIONTECH COVID-19 VACCINE [Suspect]
     Active Substance: TOZINAMERAN
     Indication: COVID-19 immunisation
     Dosage: UNKNOWN (VIAL CONTAINS 6 DOSES OF 0.3 ML AFTER DILUTION), SUSPENSION INTRAMUSCULAR
     Route: 065

REACTIONS (4)
  - Blood pressure fluctuation [Unknown]
  - Colitis ulcerative [Unknown]
  - Heart rate decreased [Unknown]
  - Malaise [Unknown]
